FAERS Safety Report 10086945 (Version 1)
Quarter: 2014Q2

REPORT INFORMATION
  Report Type: Spontaneous
  Country: DE (occurrence: DE)
  Receive Date: 20140418
  Receipt Date: 20140418
  Transmission Date: 20141212
  Serious: Yes (Other)
  Sender: FDA-Public Use
  Company Number: CHNY2014DE001077

PATIENT
  Sex: Female

DRUGS (1)
  1. VOLTAREN DOLO [Suspect]
     Indication: PAIN
     Dosage: 25 MG, PRN
     Route: 048
     Dates: end: 20140409

REACTIONS (3)
  - Formication [Not Recovered/Not Resolved]
  - Rash pustular [Not Recovered/Not Resolved]
  - Pruritus [Not Recovered/Not Resolved]
